FAERS Safety Report 16904509 (Version 1)
Quarter: 2019Q4

REPORT INFORMATION
  Report Type: Spontaneous
  Country: US (occurrence: US)
  Receive Date: 20191010
  Receipt Date: 20191010
  Transmission Date: 20200122
  Serious: No
  Sender: FDA-Public Use
  Company Number: US-CHILTERN-US-2019-000706

PATIENT
  Age: 69 Year
  Sex: Male
  Weight: 58.96 kg

DRUGS (6)
  1. BRIMONIDINE [Concomitant]
     Active Substance: BRIMONIDINE TARTRATE
     Indication: INTRAOCULAR PRESSURE INCREASED
     Dosage: UNK, TID (RIGHT EYE)
     Route: 047
  2. ACETAZOLAMIDE. [Concomitant]
     Active Substance: ACETAZOLAMIDE
     Indication: INTRAOCULAR PRESSURE INCREASED
     Dosage: 250 MG, TID
     Route: 048
     Dates: start: 2016
  3. ROCKLATAN [Suspect]
     Active Substance: LATANOPROST\NETARSUDIL MESYLATE
     Indication: INTRAOCULAR PRESSURE INCREASED
     Dosage: 1 GTT, QD
     Route: 047
     Dates: start: 20190711
  4. ATROPINE. [Concomitant]
     Active Substance: ATROPINE
     Indication: INTRAOCULAR PRESSURE INCREASED
     Dosage: UNK, PRN (LEFT EYE)
     Route: 047
  5. PREDNISOLONE. [Concomitant]
     Active Substance: PREDNISOLONE
     Indication: INTRAOCULAR PRESSURE INCREASED
     Dosage: UNK (LEFT EYE ONLY)
     Route: 047
  6. DORZOLAMIDE TIMOLOL [Concomitant]
     Active Substance: DORZOLAMIDE
     Indication: INTRAOCULAR PRESSURE INCREASED
     Dosage: UNK, BID (BOTH EYES)
     Route: 047

REACTIONS (3)
  - Vision blurred [Not Recovered/Not Resolved]
  - Product dose omission [Unknown]
  - Product storage error [Unknown]

NARRATIVE: CASE EVENT DATE: 20190712
